FAERS Safety Report 22108448 (Version 1)
Quarter: 2023Q1

REPORT INFORMATION
  Report Type: Spontaneous
  Country: ES (occurrence: ES)
  Receive Date: 20230317
  Receipt Date: 20230317
  Transmission Date: 20230418
  Serious: Yes (Hospitalization, Other)
  Sender: FDA-Public Use
  Company Number: ES-SA-SAC20230316001446

PATIENT
  Age: 65 Year
  Sex: Male

DRUGS (1)
  1. LANTUS SOLOSTAR [Suspect]
     Active Substance: INSULIN GLARGINE
     Indication: Type 2 diabetes mellitus
     Dosage: UNK
     Route: 058
     Dates: start: 2021

REACTIONS (5)
  - Renal neoplasm [Recovering/Resolving]
  - Vena cava thrombosis [Recovering/Resolving]
  - Hypoglycaemia [Not Recovered/Not Resolved]
  - Blood glucose increased [Unknown]
  - Product storage error [Unknown]

NARRATIVE: CASE EVENT DATE: 20230314
